FAERS Safety Report 7888274-6 (Version None)
Quarter: 2011Q4

REPORT INFORMATION
  Report Type: 
  Country: None (occurrence: None)
  Receive Date: 20111102
  Receipt Date: 20111102
  Transmission Date: 20120403
  Serious: Yes (Hospitalization)
  Sender: FDA-Public Use
  Company Number: None

PATIENT
  Age: 54 Year
  Sex: Male

DRUGS (1)
  1. SIMPONI [Suspect]
     Indication: RHEUMATOID ARTHRITIS
     Dosage: 50MG ONCE A MONTH SQ
     Route: 058
     Dates: start: 20110801, end: 20111027

REACTIONS (2)
  - URTICARIA [None]
  - ASTHENIA [None]
